FAERS Safety Report 20821145 (Version 1)
Quarter: 2022Q2

REPORT INFORMATION
  Report Type: Spontaneous
  Country: US (occurrence: US)
  Receive Date: 20220512
  Receipt Date: 20220512
  Transmission Date: 20220721
  Serious: No
  Sender: FDA-Public Use
  Company Number: US-PFIZER INC-202101844575

PATIENT
  Age: 45 Year
  Sex: Female

DRUGS (1)
  1. XELJANZ [Suspect]
     Active Substance: TOFACITINIB CITRATE
     Dosage: 5 MG, 2X/DAY (5MG BY MOUTH TWICE DAILY)
     Route: 048
     Dates: start: 20210819

REACTIONS (5)
  - Product dose omission issue [Recovered/Resolved]
  - Peripheral swelling [Unknown]
  - Arthritis [Unknown]
  - Arthritis [Unknown]
  - Joint stiffness [Not Recovered/Not Resolved]

NARRATIVE: CASE EVENT DATE: 20211218
